FAERS Safety Report 6248329-9 (Version None)
Quarter: 2009Q2

REPORT INFORMATION
  Report Type: 
  Country: None (occurrence: None)
  Receive Date: 20090629
  Receipt Date: 20090617
  Transmission Date: 20091009
  Serious: Yes (Other)
  Sender: FDA-Public Use
  Company Number: PHHY2009BR24549

PATIENT
  Age: 52 Year
  Sex: Male

DRUGS (6)
  1. TEGRETOL [Suspect]
     Indication: ABNORMAL BEHAVIOUR
     Dosage: 400 MG, UNK
  2. TEGRETOL [Suspect]
     Dosage: 1800 MG DAILY
  3. SEROQUEL [Concomitant]
     Indication: ABNORMAL BEHAVIOUR
     Dosage: 100 MG
  4. CLOPIDOGREL [Concomitant]
     Indication: INFARCTION
     Dosage: 75 MG
  5. AAS [Concomitant]
     Indication: INFARCTION
     Dosage: 100 MG
  6. SIMVASTATIN [Concomitant]
     Indication: INFARCTION
     Dosage: 40 MG

REACTIONS (2)
  - RENAL FAILURE [None]
  - URAEMIC ENCEPHALOPATHY [None]
